FAERS Safety Report 8886821 (Version 9)
Quarter: 2013Q2

REPORT INFORMATION
  Report Type: Report from Study
  Country: US (occurrence: US)
  Receive Date: 20121105
  Receipt Date: 20130430
  Transmission Date: 20140414
  Serious: Yes (Other)
  Sender: FDA-Public Use
  Company Number: US-ROCHE-1142483

PATIENT
  Age: 75 Year
  Sex: Female
  Weight: 81.72 kg

DRUGS (26)
  1. VEMURAFENIB [Suspect]
     Route: 048
     Dates: start: 20120519
  2. VEMURAFENIB [Suspect]
     Route: 048
     Dates: start: 20120216
  3. VEMURAFENIB [Suspect]
     Route: 048
  4. VEMURAFENIB [Suspect]
     Route: 048
     Dates: start: 20120425
  5. VEMURAFENIB [Suspect]
     Route: 048
     Dates: start: 201203, end: 201210
  6. VEMURAFENIB [Suspect]
     Route: 048
     Dates: start: 201210
  7. VEMURAFENIB [Suspect]
     Route: 048
     Dates: start: 20120305
  8. CIPRO [Concomitant]
     Route: 048
     Dates: start: 20120925
  9. HYDROCHLOROTHIAZIDE [Concomitant]
     Route: 048
     Dates: start: 20120925
  10. HYDROCODONE/ACETAMINOPHEN [Concomitant]
     Dosage: 10-325 MG
     Route: 048
     Dates: start: 20120614
  11. POTASSIUM CHLORIDE SR [Concomitant]
     Route: 048
     Dates: start: 20120614
  12. ALBUTEROL SULFATE [Concomitant]
     Route: 065
  13. CARISOPRODOL [Concomitant]
     Route: 048
  14. FISH OIL [Concomitant]
     Route: 048
  15. GABAPENTIN [Concomitant]
     Route: 048
  16. MIRALAX [Concomitant]
     Route: 048
  17. PREDNISONE [Concomitant]
     Route: 048
  18. ZANTAC [Concomitant]
     Route: 048
  19. VALIUM [Concomitant]
     Route: 048
  20. SENNA-S [Concomitant]
     Dosage: 8.6-50 MG
     Route: 048
  21. TRIPLE MIX (UNK INGREDIENTS) [Concomitant]
     Route: 048
  22. CALCIUM/VITAMIN D [Concomitant]
     Route: 048
  23. PHENERGAN [Concomitant]
     Indication: NAUSEA
     Route: 048
  24. NEURONTIN [Concomitant]
     Route: 048
  25. VEMURAFENIB [Suspect]
     Indication: METASTATIC MALIGNANT MELANOMA
     Route: 048
     Dates: start: 20120216, end: 20120320
  26. VEMURAFENIB [Suspect]
     Route: 048
     Dates: start: 201203, end: 201204

REACTIONS (54)
  - Burning sensation [Recovered/Resolved]
  - Stomatitis [Not Recovered/Not Resolved]
  - Generalised erythema [Not Recovered/Not Resolved]
  - Myalgia [Recovered/Resolved]
  - Asthenia [Not Recovered/Not Resolved]
  - Blister [Not Recovered/Not Resolved]
  - Alopecia [Not Recovered/Not Resolved]
  - Eye pain [Not Recovered/Not Resolved]
  - Blister [Not Recovered/Not Resolved]
  - Abasia [Not Recovered/Not Resolved]
  - Furuncle [Not Recovered/Not Resolved]
  - Cough [Not Recovered/Not Resolved]
  - Nasal ulcer [Recovered/Resolved]
  - Erythema [Recovered/Resolved]
  - Pain [Recovered/Resolved]
  - Dysuria [Recovering/Resolving]
  - Chills [Recovered/Resolved]
  - Vision blurred [Not Recovered/Not Resolved]
  - Furuncle [Recovering/Resolving]
  - Asthenia [Recovering/Resolving]
  - Muscle spasms [Recovering/Resolving]
  - Blister [Recovering/Resolving]
  - Skin ulcer [Recovering/Resolving]
  - Nausea [Recovering/Resolving]
  - Stomatitis [Recovering/Resolving]
  - Cold sweat [Recovered/Resolved]
  - Eye pain [Not Recovered/Not Resolved]
  - Photosensitivity reaction [Not Recovered/Not Resolved]
  - Arthralgia [Recovering/Resolving]
  - Joint range of motion decreased [Recovering/Resolving]
  - Burning sensation [Not Recovered/Not Resolved]
  - Paraesthesia [Not Recovered/Not Resolved]
  - Hypoaesthesia [Not Recovered/Not Resolved]
  - Blister [Not Recovered/Not Resolved]
  - Headache [Not Recovered/Not Resolved]
  - Pain [Not Recovered/Not Resolved]
  - Ovarian cyst [Not Recovered/Not Resolved]
  - Blister [Not Recovered/Not Resolved]
  - Blister [Not Recovered/Not Resolved]
  - Erythema [Not Recovered/Not Resolved]
  - Skin burning sensation [Not Recovered/Not Resolved]
  - Blister [Not Recovered/Not Resolved]
  - Arthralgia [Not Recovered/Not Resolved]
  - Arthralgia [Not Recovered/Not Resolved]
  - Carpal tunnel syndrome [Not Recovered/Not Resolved]
  - Renal cyst [Not Recovered/Not Resolved]
  - Pyrexia [Recovered/Resolved]
  - Chills [Recovered/Resolved]
  - Asthenia [Recovered/Resolved]
  - Eye disorder [Not Recovered/Not Resolved]
  - Pain [Not Recovered/Not Resolved]
  - Furuncle [Not Recovered/Not Resolved]
  - Carpal tunnel syndrome [Not Recovered/Not Resolved]
  - Hypoaesthesia [Not Recovered/Not Resolved]
